FAERS Safety Report 21251381 (Version 2)
Quarter: 2022Q3

REPORT INFORMATION
  Report Type: Report from Study
  Country: HU (occurrence: HU)
  Receive Date: 20220825
  Receipt Date: 20220909
  Transmission Date: 20221027
  Serious: Yes (Other)
  Sender: FDA-Public Use
  Company Number: HU-UCBSA-2022042421

PATIENT
  Age: 13 Year
  Sex: Male
  Weight: 65 kg

DRUGS (8)
  1. BRIVARACETAM [Suspect]
     Active Substance: BRIVARACETAM
     Indication: Epilepsy
     Dosage: 50 MILLIGRAM, 2X/DAY (BID)
  2. AMOXICILLIN [Concomitant]
     Active Substance: AMOXICILLIN
     Indication: Bronchitis
  3. DICLOFENAC SODIUM [Concomitant]
     Active Substance: DICLOFENAC SODIUM
     Indication: Headache
  4. METAMIZOLE SODIUM [Concomitant]
     Active Substance: METAMIZOLE SODIUM
     Indication: Headache
  5. VITAMIN B [Concomitant]
     Active Substance: VITAMIN B
     Indication: Bronchitis
  6. MAGNESIUM [Concomitant]
     Active Substance: MAGNESIUM
     Indication: Bronchitis
  7. VITAMIN C [Concomitant]
     Active Substance: ASCORBIC ACID
     Indication: Bronchitis
  8. VITAMIN D NOS [Concomitant]
     Active Substance: VITAMIN D NOS
     Indication: Bronchitis

REACTIONS (7)
  - Seizure [Not Recovered/Not Resolved]
  - Aggression [Recovered/Resolved]
  - Gastroenteritis viral [Recovered/Resolved]
  - Pyrexia [Recovered/Resolved]
  - Bronchitis [Recovered/Resolved]
  - Headache [Recovered/Resolved]
  - Cough [Recovered/Resolved]

NARRATIVE: CASE EVENT DATE: 20220416
